FAERS Safety Report 14673453 (Version 1)
Quarter: 2018Q1

REPORT INFORMATION
  Report Type: Spontaneous
  Country: US (occurrence: US)
  Receive Date: 20180322
  Receipt Date: 20180322
  Transmission Date: 20180509
  Serious: Yes (Disabling)
  Sender: FDA-Public Use
  Company Number: None

PATIENT
  Age: 57 Year
  Sex: Female
  Weight: 83.25 kg

DRUGS (11)
  1. VITAMIN D3 [Concomitant]
     Active Substance: CHOLECALCIFEROL
  2. AMLODIPINE BESYLATE. [Concomitant]
     Active Substance: AMLODIPINE BESYLATE
  3. CINNAMON. [Concomitant]
     Active Substance: CINNAMON
  4. METFROMIN ER [Concomitant]
  5. ACARBOSE. [Concomitant]
     Active Substance: ACARBOSE
  6. ATORVASTATIN [Concomitant]
     Active Substance: ATORVASTATIN
  7. LISINOPRIL. [Concomitant]
     Active Substance: LISINOPRIL
  8. MAGNESIUM [Concomitant]
     Active Substance: MAGNESIUM
  9. GLIPIZIDE ER [Concomitant]
     Active Substance: GLIPIZIDE
  10. TAMOXIFEN CITRATE. [Suspect]
     Active Substance: TAMOXIFEN CITRATE
     Indication: INTRADUCTAL PROLIFERATIVE BREAST LESION
     Dosage: ?          QUANTITY:1 TABLET(S);?
     Route: 048
     Dates: start: 20130701, end: 20171002
  11. ZINC. [Concomitant]
     Active Substance: ZINC

REACTIONS (2)
  - Endometrial adenocarcinoma [None]
  - Postmenopausal haemorrhage [None]

NARRATIVE: CASE EVENT DATE: 20170929
